FAERS Safety Report 5052994-1 (Version None)
Quarter: 2006Q3

REPORT INFORMATION
  Report Type: 
  Country: None (occurrence: None)
  Receive Date: 20060711
  Receipt Date: 20060616
  Transmission Date: 20061208
  Serious: Yes (Hospitalization)
  Sender: FDA-Public Use
  Company Number: NL200606003867

PATIENT
  Age: 10 Year
  Sex: Male
  Weight: 34.0198 kg

DRUGS (1)
  1. STRATTERA [Suspect]
     Indication: ATTENTION DEFICIT/HYPERACTIVITY DISORDER

REACTIONS (6)
  - ABDOMINAL PAIN UPPER [None]
  - ANOREXIA [None]
  - FOOD POISONING [None]
  - HYPOTHERMIA [None]
  - NAUSEA [None]
  - SHOCK [None]
